FAERS Safety Report 12864792 (Version 2)
Quarter: 2017Q3

REPORT INFORMATION
  Report Type: Spontaneous
  Country: IT (occurrence: IT)
  Receive Date: 20161020
  Receipt Date: 20170927
  Transmission Date: 20171127
  Serious: Yes (Hospitalization)
  Sender: FDA-Public Use
  Company Number: IT-AUROBINDO-AUR-APL-2016-12769

PATIENT
  Age: 69 Year
  Sex: Male

DRUGS (1)
  1. ACICLOVIR [Suspect]
     Active Substance: ACYCLOVIR
     Indication: HERPES DERMATITIS
     Dosage: 1000 MG, DAILY
     Route: 048
     Dates: start: 20160830, end: 20160831

REACTIONS (4)
  - Dysphonia [Recovering/Resolving]
  - Dysphagia [Recovering/Resolving]
  - Palatal oedema [Recovering/Resolving]
  - Dyspnoea [Recovering/Resolving]

NARRATIVE: CASE EVENT DATE: 20160831
